FAERS Safety Report 7685736-1 (Version None)
Quarter: 2011Q3

REPORT INFORMATION
  Report Type: 
  Country: None (occurrence: None)
  Receive Date: 20110815
  Receipt Date: 20110815
  Transmission Date: 20111222
  Serious: Yes (Other)
  Sender: FDA-Public Use
  Company Number: None

PATIENT
  Age: 69 Year
  Sex: Male
  Weight: 95.254 kg

DRUGS (2)
  1. ASPIRIN [Concomitant]
  2. CRESTOR [Suspect]
     Indication: LOW DENSITY LIPOPROTEIN
     Dosage: 10MG
     Route: 048
     Dates: start: 20110115, end: 20110729

REACTIONS (4)
  - CARDIOMYOPATHY [None]
  - SYNCOPE [None]
  - DIZZINESS [None]
  - DYSPNOEA EXERTIONAL [None]
